FAERS Safety Report 12156313 (Version 2)
Quarter: 2016Q1

REPORT INFORMATION
  Report Type: Spontaneous
  Country: None (occurrence: GB)
  Receive Date: 20160307
  Receipt Date: 20160311
  Transmission Date: 20160526
  Serious: Yes (Hospitalization)
  Sender: FDA-Public Use
  Company Number: GB-MEDAC PHARMA, INC.-1048754

PATIENT
  Age: 70 Year
  Sex: Female

DRUGS (1)
  1. METOJECT PEN [Suspect]
     Active Substance: METHOTREXATE
     Route: 058
     Dates: start: 201411

REACTIONS (7)
  - Eye pain [Unknown]
  - Eye swelling [Recovering/Resolving]
  - Optic nerve disorder [Unknown]
  - Drug hypersensitivity [Recovering/Resolving]
  - Vision blurred [Recovering/Resolving]
  - Eye pruritus [Recovering/Resolving]
  - Dry skin [Recovering/Resolving]

NARRATIVE: CASE EVENT DATE: 201412
